FAERS Safety Report 7283505-8 (Version None)
Quarter: 2011Q1

REPORT INFORMATION
  Report Type: 
  Country: None (occurrence: None)
  Receive Date: 20110209
  Receipt Date: 20110204
  Transmission Date: 20110831
  Serious: Yes (Disabling)
  Sender: FDA-Public Use
  Company Number: DK-BRISTOL-MYERS SQUIBB COMPANY-15440183

PATIENT
  Age: 54 Year
  Sex: Male

DRUGS (9)
  1. FURIX [Concomitant]
  2. KALEORID [Concomitant]
  3. DIGOXIN [Concomitant]
  4. ONGLYZA [Suspect]
     Indication: TYPE 2 DIABETES MELLITUS
     Route: 048
  5. INSULATARD [Concomitant]
  6. CORODIL [Concomitant]
  7. METFORMIN HCL [Concomitant]
  8. MAGNYL [Concomitant]
  9. CRESTOR [Concomitant]

REACTIONS (2)
  - HEADACHE [None]
  - WEIGHT INCREASED [None]
